FAERS Safety Report 14699712 (Version 3)
Quarter: 2018Q2

REPORT INFORMATION
  Report Type: Report from Study
  Country: US (occurrence: US)
  Receive Date: 20180330
  Receipt Date: 20180523
  Transmission Date: 20180711
  Serious: Yes (Other)
  Sender: FDA-Public Use
  Company Number: US-PFIZER INC-2018072726

PATIENT
  Age: 68 Year
  Sex: Female

DRUGS (1)
  1. SUTENT [Suspect]
     Active Substance: SUNITINIB MALATE
     Indication: GASTROINTESTINAL STROMAL TUMOUR
     Dosage: 25 MG, DAILY
     Route: 048
     Dates: start: 20180207

REACTIONS (11)
  - Bone marrow failure [Unknown]
  - Glossodynia [Unknown]
  - Blood magnesium decreased [Unknown]
  - Constipation [Unknown]
  - Pain [Unknown]
  - Headache [Unknown]
  - Fatigue [Recovering/Resolving]
  - Flatulence [Unknown]
  - Nausea [Unknown]
  - Abdominal discomfort [Unknown]
  - Diarrhoea [Unknown]

NARRATIVE: CASE EVENT DATE: 2018
